FAERS Safety Report 8344545-0 (Version None)
Quarter: 2012Q2

REPORT INFORMATION
  Report Type: 
  Country: None (occurrence: None)
  Receive Date: 20120508
  Receipt Date: 20120502
  Transmission Date: 20120825
  Serious: No
  Sender: FDA-Public Use
  Company Number: US-PFIZER INC-2012108236

PATIENT
  Sex: Male
  Weight: 87.075 kg

DRUGS (9)
  1. DETROL LA [Suspect]
     Indication: POSTOPERATIVE CARE
     Dosage: 4 MG, 1X/DAY
     Route: 048
     Dates: start: 20110301, end: 20110601
  2. PLAVIX [Concomitant]
     Indication: CARDIAC DISORDER
     Dosage: 70 MG, 1X/DAY
  3. GABAPENTIN [Concomitant]
     Indication: ARTHRITIS
     Dosage: 400 MG, 3X/DAY
  4. DETROL LA [Suspect]
     Dosage: 4 MG, 1X/DAY
     Route: 048
     Dates: start: 20120101
  5. TRICOR [Concomitant]
     Indication: CARDIAC DISORDER
     Dosage: 145 MG, 1X/DAY
  6. CARVEDILOL [Concomitant]
     Indication: BLOOD PRESSURE ABNORMAL
     Dosage: 3.125 MG, 2X/DAY
  7. GEMFIBROZIL [Concomitant]
     Indication: CARDIAC DISORDER
     Dosage: 600 MG, 2X/DAY
  8. CRESTOR [Concomitant]
     Indication: BLOOD CHOLESTEROL INCREASED
     Dosage: 40 MG, 1X/DAY
  9. DETROL LA [Suspect]
     Dosage: 4 MG, 2X/DAY
     Route: 048
     Dates: start: 20110601, end: 20120101

REACTIONS (1)
  - DRUG INEFFECTIVE [None]
